FAERS Safety Report 8429651-4 (Version None)
Quarter: 2012Q2

REPORT INFORMATION
  Report Type: 
  Country: None (occurrence: None)
  Receive Date: 20120612
  Receipt Date: 20120605
  Transmission Date: 20120825
  Serious: Yes (Hospitalization)
  Sender: FDA-Public Use
  Company Number: BG-UCBSA-057921

PATIENT
  Age: 76 Year
  Sex: Male
  Weight: 80 kg

DRUGS (4)
  1. ANALGIN [Concomitant]
     Indication: BACK PAIN
     Route: 048
     Dates: start: 20120519, end: 20120520
  2. CEPHALEXIN [Concomitant]
     Indication: LUNG INFECTION
     Route: 048
     Dates: start: 20120519, end: 20120520
  3. ANALGIN [Concomitant]
     Indication: CHEST PAIN
     Route: 048
     Dates: start: 20120519, end: 20120520
  4. ROTIGOTINE [Suspect]
     Route: 062
     Dates: start: 20120518, end: 20120520

REACTIONS (1)
  - ANGINA PECTORIS [None]
